FAERS Safety Report 8718846 (Version 2)
Quarter: 2013Q1

REPORT INFORMATION
  Report Type: Report from Study
  Country: US (occurrence: US)
  Receive Date: 20120810
  Receipt Date: 20130228
  Transmission Date: 20140127
  Serious: Yes (Other)
  Sender: FDA-Public Use
  Company Number: US-ROCHE-1099140

PATIENT
  Age: 53 None
  Sex: Male
  Weight: 80.81 kg

DRUGS (2)
  1. CAPECITABINE [Suspect]
     Indication: RECTAL CANCER
     Route: 048
     Dates: start: 20120620
  2. CAPECITABINE [Suspect]
     Indication: COLON CANCER

REACTIONS (12)
  - Rectal cancer metastatic [Unknown]
  - Fatigue [Unknown]
  - Asthenia [Not Recovered/Not Resolved]
  - Frequent bowel movements [Not Recovered/Not Resolved]
  - Abdominal discomfort [Not Recovered/Not Resolved]
  - Decreased appetite [Not Recovered/Not Resolved]
  - Weight decreased [Not Recovered/Not Resolved]
  - Constipation [Recovered/Resolved]
  - Sensation of heaviness [Unknown]
  - Insomnia [Unknown]
  - Dry skin [Unknown]
  - Skin discolouration [Unknown]
